FAERS Safety Report 6943955-3 (Version None)
Quarter: 2010Q3

REPORT INFORMATION
  Report Type: 
  Country: None (occurrence: None)
  Receive Date: 20100826
  Receipt Date: 20100727
  Transmission Date: 20110219
  Serious: Yes (Hospitalization)
  Sender: FDA-Public Use
  Company Number: PHHY2010TW49332

PATIENT
  Sex: Female
  Weight: 69 kg

DRUGS (3)
  1. ZOLEDRONATE T29581++BM [Suspect]
     Indication: BREAST CANCER
     Dosage: 4 MG, UNK
     Route: 042
     Dates: start: 20100222, end: 20100607
  2. PACLITAXEL [Concomitant]
     Indication: NEOPLASM MALIGNANT
     Dosage: UNK
     Dates: start: 20100607
  3. GEMCITABINE [Concomitant]
     Indication: NEOPLASM MALIGNANT
     Dosage: 2000 MG, UNK
     Dates: start: 20100607

REACTIONS (6)
  - BRAIN ABSCESS [None]
  - DIZZINESS [None]
  - HEADACHE [None]
  - MALIGNANT NEOPLASM PROGRESSION [None]
  - METASTASES TO CENTRAL NERVOUS SYSTEM [None]
  - MUSCULAR WEAKNESS [None]
